FAERS Safety Report 24814191 (Version 1)
Quarter: 2025Q1

REPORT INFORMATION
  Report Type: Spontaneous
  Country: US (occurrence: US)
  Receive Date: 20250107
  Receipt Date: 20250107
  Transmission Date: 20250409
  Serious: Yes (Life-Threatening, Hospitalization)
  Sender: MYLAN
  Company Number: US-MYLANLABS-2024M1116974

PATIENT
  Age: 21 Year
  Sex: Male

DRUGS (13)
  1. ETOPOSIDE [Suspect]
     Active Substance: ETOPOSIDE
     Indication: Adrenocortical carcinoma
     Route: 065
     Dates: start: 2022
  2. MITOTANE [Suspect]
     Active Substance: MITOTANE
     Indication: Adrenocortical carcinoma
     Route: 065
     Dates: start: 2022, end: 202308
  3. MITOTANE [Suspect]
     Active Substance: MITOTANE
     Route: 065
     Dates: start: 2023
  4. CISPLATIN [Suspect]
     Active Substance: CISPLATIN
     Indication: Adrenocortical carcinoma
     Route: 065
     Dates: start: 2022
  5. KEYTRUDA [Suspect]
     Active Substance: PEMBROLIZUMAB
     Indication: Adrenocortical carcinoma
     Route: 065
  6. LEVOKETOCONAZOLE [Concomitant]
     Active Substance: LEVOKETOCONAZOLE
     Indication: Cushing^s syndrome
     Route: 065
     Dates: start: 2022
  7. HYDROCORTISONE [Concomitant]
     Active Substance: HYDROCORTISONE
     Indication: Cushing^s syndrome
     Route: 065
     Dates: start: 2022
  8. DEXTROSE [Concomitant]
     Active Substance: DEXTROSE MONOHYDRATE
     Indication: Hypoglycaemia
     Route: 042
     Dates: start: 202309, end: 2023
  9. DEXTROSE [Concomitant]
     Active Substance: DEXTROSE MONOHYDRATE
     Indication: Insulin-like growth factor abnormal
  10. DEXTROSE [Concomitant]
     Active Substance: DEXTROSE MONOHYDRATE
     Indication: Insulin-like growth factor abnormal
     Route: 042
     Dates: start: 2023
  11. DEXTROSE [Concomitant]
     Active Substance: DEXTROSE MONOHYDRATE
     Indication: Hypoglycaemia
  12. GLUCAGON [Concomitant]
     Active Substance: GLUCAGON
     Indication: Hypoglycaemia
     Route: 042
     Dates: start: 2023
  13. GLUCAGON [Concomitant]
     Active Substance: GLUCAGON
     Indication: Insulin-like growth factor abnormal

REACTIONS (2)
  - Disease progression [Unknown]
  - Drug ineffective [Unknown]

NARRATIVE: CASE EVENT DATE: 20220101
